FAERS Safety Report 7784894-8 (Version None)
Quarter: 2011Q3

REPORT INFORMATION
  Report Type: 
  Country: None (occurrence: None)
  Receive Date: 20110928
  Receipt Date: 20110926
  Transmission Date: 20111222
  Serious: Yes (Other)
  Sender: FDA-Public Use
  Company Number: US-SANOFI-AVENTIS-2011SA063072

PATIENT
  Age: 82 Year
  Sex: Male

DRUGS (1)
  1. PLAVIX [Suspect]
     Route: 048
     Dates: start: 20050501

REACTIONS (3)
  - NEUROPATHY PERIPHERAL [None]
  - ATRIAL FIBRILLATION [None]
  - VASCULAR PROCEDURE COMPLICATION [None]
